FAERS Safety Report 8511604 (Version 2)
Quarter: 2012Q4

REPORT INFORMATION
  Report Type: 
  Country: US (occurrence: US)
  Receive Date: 20120413
  Receipt Date: 20121120
  Transmission Date: 20130627
  Serious: No
  Sender: FDA-Public Use
  Company Number: US-ASTRAZENECA-2011SE78948

PATIENT
  Age: 63 Year
  Sex: Male

DRUGS (3)
  1. NEXIUM [Suspect]
     Route: 048
  2. ZANTAC [Concomitant]
  3. PANTOPRAZOLE [Concomitant]

REACTIONS (5)
  - Gastrooesophageal reflux disease [Unknown]
  - Dysphagia [Unknown]
  - Abdominal pain upper [Unknown]
  - Malaise [Unknown]
  - Intentional drug misuse [Unknown]
